FAERS Safety Report 4558115-3 (Version None)
Quarter: 2005Q1

REPORT INFORMATION
  Report Type: 
  Country: None (occurrence: None)
  Receive Date: 20050103
  Receipt Date: 20040920
  Transmission Date: 20050727
  Serious: Yes (Other)
  Sender: FDA-Public Use
  Company Number: 2004UW19587

PATIENT
  Sex: Female
  Weight: 103.4201 kg

DRUGS (3)
  1. CRESTOR [Suspect]
     Indication: HYPERCHOLESTEROLAEMIA
  2. DIURIL [Concomitant]
  3. LASIX [Concomitant]

REACTIONS (2)
  - DIZZINESS [None]
  - DYSSTASIA [None]
